FAERS Safety Report 20524722 (Version 1)
Quarter: 2022Q1

REPORT INFORMATION
  Report Type: Spontaneous
  Country: CA (occurrence: None)
  Receive Date: 20220228
  Receipt Date: 20220228
  Transmission Date: 20220424
  Serious: Yes (Hospitalization)
  Sender: FDA-Public Use
  Company Number: CA-PFIZER INC-202200291849

PATIENT
  Age: 37 Year
  Sex: Female
  Weight: 84 kg

DRUGS (27)
  1. METHOTREXATE [Suspect]
     Active Substance: METHOTREXATE
     Indication: Product used for unknown indication
     Route: 065
  2. LEFLUNOMIDE [Suspect]
     Active Substance: LEFLUNOMIDE
     Indication: Product used for unknown indication
     Route: 065
  3. BLEOMYCIN [Concomitant]
     Active Substance: BLEOMYCIN SULFATE
     Route: 065
  4. DACARBAZINE [Concomitant]
     Active Substance: DACARBAZINE
     Route: 065
  5. DEXILANT [Concomitant]
     Active Substance: DEXLANSOPRAZOLE
     Route: 065
  6. DOXORUBICIN [Concomitant]
     Active Substance: DOXORUBICIN
     Route: 065
  7. INFLIXIMAB [Concomitant]
     Active Substance: INFLIXIMAB
     Indication: Crohn^s disease
     Route: 042
  8. INFLIXIMAB [Concomitant]
     Active Substance: INFLIXIMAB
     Indication: Crohn^s disease
     Route: 042
  9. INFLIXIMAB [Concomitant]
     Active Substance: INFLIXIMAB
     Route: 042
  10. INFLIXIMAB [Concomitant]
     Active Substance: INFLIXIMAB
     Route: 042
  11. INFLIXIMAB [Concomitant]
     Active Substance: INFLIXIMAB
     Route: 042
  12. INFLIXIMAB [Concomitant]
     Active Substance: INFLIXIMAB
     Route: 042
  13. INFLIXIMAB [Concomitant]
     Active Substance: INFLIXIMAB
     Route: 042
  14. INFLIXIMAB [Concomitant]
     Active Substance: INFLIXIMAB
     Route: 042
  15. INFLIXIMAB [Concomitant]
     Active Substance: INFLIXIMAB
     Route: 042
  16. INFLIXIMAB [Concomitant]
     Active Substance: INFLIXIMAB
     Route: 042
  17. INFLIXIMAB [Concomitant]
     Active Substance: INFLIXIMAB
     Route: 042
  18. INFLIXIMAB [Concomitant]
     Active Substance: INFLIXIMAB
     Route: 042
  19. INFLIXIMAB [Concomitant]
     Active Substance: INFLIXIMAB
     Route: 042
  20. INFLIXIMAB [Concomitant]
     Active Substance: INFLIXIMAB
     Route: 042
  21. INFLIXIMAB [Concomitant]
     Active Substance: INFLIXIMAB
     Route: 042
  22. INFLIXIMAB [Concomitant]
     Active Substance: INFLIXIMAB
     Route: 042
  23. INFLIXIMAB [Concomitant]
     Active Substance: INFLIXIMAB
     Route: 042
  24. INFLIXIMAB [Concomitant]
     Active Substance: INFLIXIMAB
     Route: 042
  25. INFLIXIMAB [Concomitant]
     Active Substance: INFLIXIMAB
     Route: 042
  26. PREDNISONE [Concomitant]
     Active Substance: PREDNISONE
     Route: 065
  27. VINBLASTINE [Concomitant]
     Active Substance: VINBLASTINE
     Route: 065

REACTIONS (3)
  - Blood test abnormal [Unknown]
  - Dehydration [Unknown]
  - Epigastric discomfort [Unknown]
